FAERS Safety Report 5419389-X (Version None)
Quarter: 2007Q3

REPORT INFORMATION
  Report Type: 
  Country: None (occurrence: None)
  Receive Date: 20070816
  Receipt Date: 20070816
  Transmission Date: 20080115
  Serious: Yes (Hospitalization)
  Sender: FDA-Public Use
  Company Number: None

PATIENT
  Sex: Female
  Weight: 75.9 kg

DRUGS (2)
  1. DASATINIB 100MG BMS [Suspect]
     Indication: CHEMOTHERAPY
     Dosage: 100MG  QD  PO
     Route: 048
     Dates: start: 20070627, end: 20070802
  2. CETUXIMAB   250MG/M2   BMS [Suspect]
     Indication: CHEMOTHERAPY
     Dosage: 460MG  Q WEEK  IV DRIP
     Route: 041
     Dates: start: 20070628, end: 20070802

REACTIONS (5)
  - DEHYDRATION [None]
  - HYPERCALCAEMIA [None]
  - LETHARGY [None]
  - METASTASES TO CENTRAL NERVOUS SYSTEM [None]
  - VISUAL DISTURBANCE [None]
